FAERS Safety Report 8908915 (Version 1)
Quarter: 2012Q4

REPORT INFORMATION
  Report Type: 
  Country: US (occurrence: US)
  Receive Date: 20121114
  Receipt Date: 20121114
  Transmission Date: 20130627
  Serious: No
  Sender: FDA-Public Use
  Company Number: US-ASTRAZENECA-2012SE82349

PATIENT
  Age: 28 Year
  Sex: Female
  Weight: 63.5 kg

DRUGS (5)
  1. SEROQUEL [Suspect]
     Indication: BIPOLAR DISORDER
     Route: 048
     Dates: start: 2012
  2. SEROQUEL [Suspect]
     Indication: BIPOLAR DISORDER
     Route: 048
     Dates: start: 2012
  3. PRENATAL VITAMINS [Concomitant]
     Indication: PREGNANCY
  4. ELAVIL [Concomitant]
  5. FOLIC ACID [Concomitant]

REACTIONS (2)
  - Exposure during pregnancy [Not Recovered/Not Resolved]
  - Drug screen positive [Unknown]
